FAERS Safety Report 10843524 (Version 1)
Quarter: 2015Q1

REPORT INFORMATION
  Report Type: Report from Study
  Country: US (occurrence: US)
  Receive Date: 20150220
  Receipt Date: 20150220
  Transmission Date: 20150721
  Serious: No
  Sender: FDA-Public Use
  Company Number: US-ABBVIE-14P-163-1258329-00

PATIENT
  Age: 53 Year
  Sex: Female
  Weight: 76.73 kg

DRUGS (9)
  1. FLECAINIDE [Concomitant]
     Active Substance: FLECAINIDE
     Indication: PALPITATIONS
  2. DEXILANT [Concomitant]
     Active Substance: DEXLANSOPRAZOLE
     Indication: GASTROOESOPHAGEAL REFLUX DISEASE
  3. ATIVAN [Concomitant]
     Active Substance: LORAZEPAM
     Indication: ANXIETY
     Dosage: AT BEDTIME
  4. METOPROLOL [Concomitant]
     Active Substance: METOPROLOL
     Indication: ATRIAL FIBRILLATION
  5. HUMIRA [Suspect]
     Active Substance: ADALIMUMAB
     Dates: start: 20140625
  6. CLOBETASOL [Concomitant]
     Active Substance: CLOBETASOL
     Indication: PSORIASIS
     Route: 061
     Dates: start: 201405
  7. HUMIRA [Suspect]
     Active Substance: ADALIMUMAB
     Indication: PSORIASIS
     Dates: start: 20140618, end: 20140618
  8. ASPIRIN. [Concomitant]
     Active Substance: ASPIRIN
     Indication: ATRIAL FIBRILLATION
  9. FLECAINIDE [Concomitant]
     Active Substance: FLECAINIDE
     Indication: ATRIAL FIBRILLATION

REACTIONS (2)
  - Drug effect incomplete [Not Recovered/Not Resolved]
  - Pain in extremity [Not Recovered/Not Resolved]

NARRATIVE: CASE EVENT DATE: 201406
